FAERS Safety Report 13795401 (Version 2)
Quarter: 2017Q3

REPORT INFORMATION
  Report Type: Spontaneous
  Country: US (occurrence: US)
  Receive Date: 20170726
  Receipt Date: 20170921
  Transmission Date: 20171127
  Serious: No
  Sender: FDA-Public Use
  Company Number: US-NEUROCRINE BIOSCIENCES INC.-2017NBI00313

PATIENT
  Sex: Female
  Weight: 130.3 kg

DRUGS (5)
  1. INGREZZA [Suspect]
     Active Substance: VALBENAZINE
     Route: 048
     Dates: start: 201706, end: 201706
  2. HALDOL [Concomitant]
     Active Substance: HALOPERIDOL
  3. INGREZZA [Suspect]
     Active Substance: VALBENAZINE
     Route: 048
     Dates: start: 20170620, end: 201707
  4. INGREZZA [Suspect]
     Active Substance: VALBENAZINE
     Indication: TARDIVE DYSKINESIA
     Route: 048
     Dates: start: 20170525, end: 201706
  5. INGREZZA [Suspect]
     Active Substance: VALBENAZINE
     Route: 048
     Dates: start: 201706, end: 201706

REACTIONS (7)
  - Akathisia [Unknown]
  - Tremor [Not Recovered/Not Resolved]
  - Drug dose omission [Recovered/Resolved]
  - Tongue spasm [Unknown]
  - Muscle spasms [Unknown]
  - Drug ineffective [None]
  - Insomnia [Unknown]

NARRATIVE: CASE EVENT DATE: 2017
